FAERS Safety Report 18567055 (Version 2)
Quarter: 2020Q4

REPORT INFORMATION
  Report Type: Spontaneous
  Country: US (occurrence: US)
  Receive Date: 20201202
  Receipt Date: 20201210
  Transmission Date: 20210114
  Serious: Yes (Other)
  Sender: FDA-Public Use
  Company Number: US-AMGEN-USASP2020191338

PATIENT
  Age: 63 Year
  Sex: Female

DRUGS (2)
  1. PROLIA [Suspect]
     Active Substance: DENOSUMAB
     Indication: OSTEOPOROSIS POSTMENOPAUSAL
     Dosage: UNK
     Route: 065
     Dates: start: 20201111
  2. PROLIA [Suspect]
     Active Substance: DENOSUMAB
     Dosage: UNK
     Route: 065
     Dates: start: 20201111

REACTIONS (11)
  - Fear [Unknown]
  - Osteoporosis postmenopausal [Unknown]
  - Nasopharyngitis [Unknown]
  - Back pain [Recovered/Resolved]
  - Immunosuppression [Unknown]
  - Lyme disease [Unknown]
  - Herpes simplex [Unknown]
  - Lung disorder [Unknown]
  - Decreased appetite [Unknown]
  - Infection [Unknown]
  - Arthropod bite [Unknown]

NARRATIVE: CASE EVENT DATE: 2020
